FAERS Safety Report 8391155-5 (Version None)
Quarter: 2012Q2

REPORT INFORMATION
  Report Type: 
  Country: None (occurrence: None)
  Receive Date: 20120529
  Receipt Date: 20120515
  Transmission Date: 20120825
  Serious: Yes (Death)
  Sender: FDA-Public Use
  Company Number: FI-ELI_LILLY_AND_COMPANY-FI201204008971

PATIENT
  Age: 30 Year
  Sex: Male

DRUGS (4)
  1. OLANZAPINE [Suspect]
     Dosage: 300 MG, EVERY 14 DAYS
     Route: 030
     Dates: start: 20111115
  2. RISPERIDONE [Concomitant]
     Indication: PSYCHOTIC DISORDER
     Dosage: 1 TABLET 1-2 TIMES DAILY
     Dates: start: 20120403
  3. CLONAZEPAM [Concomitant]
     Indication: PSYCHOTIC DISORDER
     Dosage: 1 TABLET 1-2 TIMES DAILY
     Route: 065
     Dates: start: 20120403
  4. LAMOTRGINE [Concomitant]
     Dosage: 200 MG, QD
     Route: 065

REACTIONS (1)
  - COMPLETED SUICIDE [None]
